FAERS Safety Report 13952374 (Version 1)
Quarter: 2017Q3

REPORT INFORMATION
  Report Type: Spontaneous
  Country: US (occurrence: US)
  Receive Date: 20170911
  Receipt Date: 20170911
  Transmission Date: 20171128
  Serious: Yes (Other)
  Sender: FDA-Public Use
  Company Number: US-TEVA-719273USA

PATIENT
  Age: 72 Year
  Sex: Female
  Weight: 55.84 kg

DRUGS (4)
  1. FENTANYL. [Suspect]
     Active Substance: FENTANYL
     Indication: CARPAL TUNNEL SYNDROME
  2. FENTANYL. [Suspect]
     Active Substance: FENTANYL
     Indication: ARTHRALGIA
  3. FENTANYL. [Suspect]
     Active Substance: FENTANYL
     Indication: ARTHRITIS
  4. FENTANYL. [Suspect]
     Active Substance: FENTANYL
     Indication: INTERVERTEBRAL DISC PROTRUSION
     Route: 062
     Dates: end: 20161204

REACTIONS (8)
  - Pain [Not Recovered/Not Resolved]
  - Paraesthesia [Not Recovered/Not Resolved]
  - Headache [Not Recovered/Not Resolved]
  - Tremor [Not Recovered/Not Resolved]
  - Drug screen negative [Unknown]
  - Nausea [Not Recovered/Not Resolved]
  - Initial insomnia [Not Recovered/Not Resolved]
  - Withdrawal syndrome [Not Recovered/Not Resolved]

NARRATIVE: CASE EVENT DATE: 20161202
